FAERS Safety Report 11320952 (Version 1)
Quarter: 2015Q3

REPORT INFORMATION
  Report Type: Spontaneous
  Country: US (occurrence: None)
  Receive Date: 20150728
  Receipt Date: 20150728
  Transmission Date: 20151125
  Serious: Yes (Hospitalization)
  Sender: FDA-Public Use
  Company Number: None

PATIENT
  Age: 76 Year
  Sex: Male
  Weight: 59.1 kg

DRUGS (2)
  1. FLUOROURACIL. [Suspect]
     Active Substance: FLUOROURACIL
     Dosage: 680 MG OTHER
     Route: 042
     Dates: start: 20140416, end: 20140922
  2. OXALIPLATIN. [Suspect]
     Active Substance: OXALIPLATIN
     Indication: COLON CANCER STAGE III
     Dosage: 115 MG OTHER
     Route: 042
     Dates: start: 20140416, end: 20140922

REACTIONS (2)
  - Febrile neutropenia [None]
  - Hypotension [None]

NARRATIVE: CASE EVENT DATE: 20140922
